FAERS Safety Report 15133269 (Version 2)
Quarter: 2018Q3

REPORT INFORMATION
  Report Type: Spontaneous
  Country: CO (occurrence: CO)
  Receive Date: 20180712
  Receipt Date: 20180813
  Transmission Date: 20181010
  Serious: Yes (Other)
  Sender: FDA-Public Use
  Company Number: CO-UCBSA-2018030526

PATIENT
  Age: 3 Year
  Sex: Female
  Weight: 18 kg

DRUGS (3)
  1. KEPPRA [Suspect]
     Active Substance: LEVETIRACETAM
     Dosage: 2 ML, UNK
     Route: 048
  2. KEPPRA [Suspect]
     Active Substance: LEVETIRACETAM
     Indication: EPILEPSY
     Dosage: 3 ML, 2X/DAY (BID)
     Route: 048
  3. KEPPRA [Suspect]
     Active Substance: LEVETIRACETAM
     Dosage: 8 ML, 3X/DAY (TID), (2 ML IN THE MORNING, 2 ML IN THE AFTERNOON AND 4 ML AT NIGHT)
     Route: 048

REACTIONS (3)
  - Intentional product misuse [Unknown]
  - Seizure [Recovered/Resolved]
  - Accidental underdose [Unknown]
